FAERS Safety Report 7920683-9 (Version None)
Quarter: 2011Q4

REPORT INFORMATION
  Report Type: 
  Country: None (occurrence: None)
  Receive Date: 20111117
  Receipt Date: 20111018
  Transmission Date: 20120403
  Serious: Yes (Hospitalization, Other)
  Sender: FDA-Public Use
  Company Number: CH-SANOFI-AVENTIS-2011SA063478

PATIENT
  Sex: Male

DRUGS (7)
  1. JEVTANA KIT [Suspect]
     Indication: PROSTATE CANCER
     Route: 042
  2. PREDNISONE TAB [Concomitant]
  3. JEVTANA KIT [Suspect]
     Route: 042
  4. SOLU-MEDROL [Concomitant]
     Indication: PAIN
  5. DICLOFENAC SODIUM [Concomitant]
     Indication: PAIN
     Route: 042
  6. BECOZYME [Concomitant]
  7. BENERVA [Concomitant]

REACTIONS (12)
  - BLOOD LACTATE DEHYDROGENASE INCREASED [None]
  - PULMONARY HAEMORRHAGE [None]
  - ABSCESS [None]
  - DIARRHOEA [None]
  - DECUBITUS ULCER [None]
  - MUSCLE ATROPHY [None]
  - COOMBS POSITIVE HAEMOLYTIC ANAEMIA [None]
  - HYPOPROTEINAEMIA [None]
  - RENAL FAILURE [None]
  - THROMBOCYTOPENIA [None]
  - CHOLESTASIS [None]
  - BACTERIAL SEPSIS [None]
